FAERS Safety Report 23585497 (Version 1)
Quarter: 2024Q1

REPORT INFORMATION
  Report Type: Spontaneous
  Country: US (occurrence: None)
  Receive Date: 20240229
  Receipt Date: 20240229
  Transmission Date: 20240410
  Serious: Yes (Death)
  Sender: FDA-Public Use
  Company Number: None

PATIENT
  Age: 68 Year
  Sex: Female

DRUGS (1)
  1. ERBITUX [Suspect]
     Active Substance: CETUXIMAB
     Dosage: OTHER FREQUENCY : EVERY 14 DAYS;?
     Dates: start: 20230726, end: 20240213

REACTIONS (1)
  - Death [None]

NARRATIVE: CASE EVENT DATE: 20240223
